FAERS Safety Report 7957892-9 (Version None)
Quarter: 2011Q4

REPORT INFORMATION
  Report Type: 
  Country: None (occurrence: None)
  Receive Date: 20111201
  Receipt Date: 20111118
  Transmission Date: 20120403
  Serious: Yes (Other)
  Sender: FDA-Public Use
  Company Number: 2011GB0339

PATIENT
  Age: 56 Year
  Sex: Male

DRUGS (2)
  1. AMLODIPINE [Concomitant]
  2. ANAKINRA (ANAKINRA) [Suspect]
     Dosage: 50 MG (50 MG, 1 IN 1 D)
     Route: 058
     Dates: start: 20100801

REACTIONS (1)
  - CHOLECYSTITIS [None]
